FAERS Safety Report 8820974 (Version 4)
Quarter: 2012Q4

REPORT INFORMATION
  Report Type: 
  Country: US (occurrence: US)
  Receive Date: 20121002
  Receipt Date: 20121129
  Transmission Date: 20130627
  Serious: No
  Sender: FDA-Public Use
  Company Number: US-VERTEX PHARMACEUTICAL INC.-2012-020591

PATIENT
  Sex: Female

DRUGS (3)
  1. VX-950 (TELAPREVIR) [Suspect]
     Indication: HEPATITIS C
     Dosage: 750 mg, tid
     Route: 048
     Dates: start: 2012
  2. PEGINTRON [Suspect]
     Indication: HEPATITIS C
     Dosage: 80 ?g, qw
     Route: 058
     Dates: start: 2012
  3. RIBAPAK [Suspect]
     Indication: HEPATITIS C
     Dosage: 400 mg am, 200 mg pm, bid
     Route: 048
     Dates: start: 2012

REACTIONS (8)
  - White blood cell count decreased [Unknown]
  - Stomatitis [Unknown]
  - Influenza like illness [Unknown]
  - Hypersensitivity [Unknown]
  - Fatigue [Unknown]
  - Rash papular [Unknown]
  - Haemoglobin decreased [Unknown]
  - Nausea [Unknown]
